FAERS Safety Report 8309490-5 (Version None)
Quarter: 2012Q2

REPORT INFORMATION
  Report Type: 
  Country: None (occurrence: None)
  Receive Date: 20120425
  Receipt Date: 20120420
  Transmission Date: 20120825
  Serious: No
  Sender: FDA-Public Use
  Company Number: US-PFIZER INC-2012098545

PATIENT
  Sex: Female
  Weight: 52.154 kg

DRUGS (6)
  1. VESICARE [Concomitant]
     Indication: HYPERTONIC BLADDER
     Dosage: 10 MG, UNK
  2. DARIFENACIN [Concomitant]
     Indication: HYPERTONIC BLADDER
     Dosage: 15 MG, UNK
  3. DETROL LA [Suspect]
     Indication: HYPERTONIC BLADDER
     Dosage: 4 MG, UNK
  4. DITROPAN [Concomitant]
     Indication: HYPERTONIC BLADDER
     Dosage: UNK
  5. REQUIP [Concomitant]
     Indication: RESTLESS LEGS SYNDROME
     Dosage: UNK
  6. PEPCID AC [Concomitant]
     Indication: DYSPEPSIA
     Dosage: UNK

REACTIONS (7)
  - ARTHRITIS [None]
  - DRUG INEFFECTIVE [None]
  - BACK DISORDER [None]
  - URINARY INCONTINENCE [None]
  - COUGH [None]
  - SNEEZING [None]
  - SPONDYLITIS [None]
